FAERS Safety Report 14847917 (Version 3)
Quarter: 2018Q3

REPORT INFORMATION
  Report Type: Spontaneous
  Country: GB (occurrence: GB)
  Receive Date: 20180504
  Receipt Date: 20180712
  Transmission Date: 20181010
  Serious: Yes (Hospitalization)
  Sender: FDA-Public Use
  Company Number: GB-VERTEX PHARMACEUTICALS-2018-002819

PATIENT
  Age: 53 Year
  Sex: Male

DRUGS (13)
  1. COLISTIN [Concomitant]
     Active Substance: COLISTIN
     Indication: INFECTIVE PULMONARY EXACERBATION OF CYSTIC FIBROSIS
     Dosage: UNK
     Route: 042
     Dates: start: 20180424, end: 20180501
  2. CREON [Concomitant]
     Active Substance: PANCRELIPASE AMYLASE\PANCRELIPASE LIPASE\PANCRELIPASE PROTEASE
  3. CALCIUM D3 F [Concomitant]
     Dosage: 3 DOSAGE FORM, QD
  4. DORNASE ALFA. [Concomitant]
     Active Substance: DORNASE ALFA
     Dosage: 2.5 MG, QD
     Route: 055
  5. OMEPRAZOLE. [Concomitant]
     Active Substance: OMEPRAZOLE
     Dosage: 20 MG, QD
  6. FOSTAIR [Concomitant]
     Active Substance: BECLOMETHASONE\FORMOTEROL
     Dosage: UNK, BID
  7. AZITHROMYCIN ANHYDROUS. [Concomitant]
     Active Substance: AZITHROMYCIN ANHYDROUS
     Dosage: 500 MG, QD
  8. VITAMIN K [Concomitant]
     Active Substance: PHYTONADIONE
     Dosage: 10 MG, QD
  9. HYPERTONIC SALINE SOLUTION [Concomitant]
     Active Substance: SODIUM CHLORIDE
     Dosage: UNK, PRN
     Route: 055
  10. COLISTIN [Concomitant]
     Active Substance: COLISTIN
     Indication: LUNG INFECTION
     Dosage: 2 MILLION UNITS  BID, ALTERNATE MONTHLY
     Route: 055
  11. SALBUTAMOL [Concomitant]
     Active Substance: ALBUTEROL
     Dosage: 4 NEBULISERS, PRN
     Route: 055
  12. VITAMIN E                          /00110501/ [Concomitant]
     Active Substance: TOCOPHEROL
     Dosage: 200 MG, QD
  13. KALYDECO [Suspect]
     Active Substance: IVACAFTOR
     Indication: CYSTIC FIBROSIS
     Dosage: 150 MG, BID
     Route: 048
     Dates: start: 20130520

REACTIONS (2)
  - Lung infection [Recovered/Resolved]
  - Infective pulmonary exacerbation of cystic fibrosis [Recovered/Resolved]

NARRATIVE: CASE EVENT DATE: 20180228
